FAERS Safety Report 20546383 (Version 1)
Quarter: 2022Q1

REPORT INFORMATION
  Report Type: Spontaneous
  Country: US (occurrence: US)
  Receive Date: 20220303
  Receipt Date: 20220303
  Transmission Date: 20220423
  Serious: Yes (Hospitalization)
  Sender: FDA-Public Use
  Company Number: US-PFIZER INC-202200293099

PATIENT
  Age: 25 Year
  Sex: Female

DRUGS (1)
  1. DOXYCYCLINE HYCLATE [Suspect]
     Active Substance: DOXYCYCLINE HYCLATE
     Indication: Malaria
     Dosage: UNK
     Route: 048

REACTIONS (3)
  - Drug intolerance [Unknown]
  - Off label use [Unknown]
  - Drug ineffective for unapproved indication [Unknown]
